FAERS Safety Report 9503604 (Version 3)
Quarter: 2015Q3

REPORT INFORMATION
  Report Type: Report from Study
  Country: US (occurrence: US)
  Receive Date: 20130906
  Receipt Date: 20150710
  Transmission Date: 20151125
  Serious: Yes (Hospitalization, Other)
  Sender: FDA-Public Use
  Company Number: US-PFIZER INC-2013250880

PATIENT
  Age: 63 Year
  Sex: Male

DRUGS (7)
  1. IRINOTECAN HCL [Suspect]
     Active Substance: IRINOTECAN HYDROCHLORIDE
     Indication: COLON CANCER
     Dosage: 307 MG, CYCLIC (1 IN 2 WEEKS)
     Route: 042
     Dates: start: 20130626
  2. BEVACIZUMAB [Suspect]
     Active Substance: BEVACIZUMAB
     Indication: COLON CANCER
     Dosage: 346 MG, CYCLIC (1 IN 2 WEEKS)
     Route: 042
     Dates: start: 20130626, end: 20130730
  3. FLUOROURACIL. [Suspect]
     Active Substance: FLUOROURACIL
     Indication: COLON CANCER
     Dosage: 3200 MG, 1 IN 2 WEEKS
     Route: 042
     Dates: start: 20130626
  4. OXALIPLATIN. [Suspect]
     Active Substance: OXALIPLATIN
     Dosage: 85 MG/M2, 1 IN 2 WEEKS
     Route: 042
     Dates: start: 20130806
  5. LEUCOVORIN CALCIUM. [Suspect]
     Active Substance: LEUCOVORIN CALCIUM
     Indication: COLON CANCER
     Dosage: 372 MG, CYCLIC (1 IN 2 WEEKS)
     Route: 042
     Dates: start: 20130626
  6. OXALIPLATIN. [Suspect]
     Active Substance: OXALIPLATIN
     Indication: COLON CANCER
     Dosage: 85 MG/M2, 1 IN 2 WEEKS
     Route: 042
     Dates: start: 20130626, end: 20130730
  7. BEVACIZUMAB [Suspect]
     Active Substance: BEVACIZUMAB
     Dosage: 346 MG, CYCLIC (1 IN 2 WEEKS)
     Route: 042
     Dates: start: 20130806

REACTIONS (2)
  - Rectal abscess [Recovered/Resolved with Sequelae]
  - Rectal perforation [Recovered/Resolved with Sequelae]

NARRATIVE: CASE EVENT DATE: 20130823
